FAERS Safety Report 7135302-1 (Version None)
Quarter: 2010Q4

REPORT INFORMATION
  Report Type: 
  Country: None (occurrence: None)
  Receive Date: 20101203
  Receipt Date: 20101122
  Transmission Date: 20110411
  Serious: Yes (Hospitalization)
  Sender: FDA-Public Use
  Company Number: B0676775A

PATIENT
  Sex: Female
  Weight: 84 kg

DRUGS (4)
  1. AVANDAMET [Suspect]
     Dosage: 4MG TWICE PER DAY
     Route: 048
     Dates: start: 20060406
  2. AVANDIA [Suspect]
     Dosage: 4MG PER DAY
     Route: 048
     Dates: start: 20031126, end: 20060406
  3. COVERSYL [Concomitant]
     Dosage: 1MG PER DAY
     Route: 048
     Dates: start: 20000101
  4. GLUCOPHAGE [Concomitant]
     Dosage: 1000MG PER DAY
     Route: 048
     Dates: start: 20000101

REACTIONS (2)
  - CORONARY ARTERY STENOSIS [None]
  - SILENT MYOCARDIAL INFARCTION [None]
